FAERS Safety Report 7395340-0 (Version None)
Quarter: 2011Q2

REPORT INFORMATION
  Report Type: 
  Country: None (occurrence: None)
  Receive Date: 20110405
  Receipt Date: 20110401
  Transmission Date: 20111010
  Serious: No
  Sender: FDA-Public Use
  Company Number: US-PFIZER INC-2010026201

PATIENT
  Sex: Female

DRUGS (2)
  1. LYRICA [Suspect]
     Indication: GAIT DISTURBANCE
     Dosage: UNK
  2. KEPPRA [Suspect]
     Indication: CONVULSION
     Dosage: UNK

REACTIONS (1)
  - GAIT DISTURBANCE [None]
